FAERS Safety Report 24793324 (Version 1)
Quarter: 2024Q4

REPORT INFORMATION
  Report Type: Spontaneous
  Country: FR (occurrence: FR)
  Receive Date: 20241231
  Receipt Date: 20241231
  Transmission Date: 20250115
  Serious: Yes (Other)
  Sender: SANOFI AVENTIS
  Company Number: None

PATIENT
  Age: 90 Year
  Sex: Male
  Weight: 48 kg

DRUGS (9)
  1. TAMSULOSIN HYDROCHLORIDE [Suspect]
     Active Substance: TAMSULOSIN HYDROCHLORIDE
     Indication: Benign prostatic hyperplasia
     Dosage: 0.4 MG, QD
     Route: 048
     Dates: end: 20241121
  2. PERINDOPRIL [Suspect]
     Active Substance: PERINDOPRIL
     Indication: Wrong patient
     Dosage: 4 MG, TOTAL
     Route: 048
     Dates: start: 20241122, end: 20241122
  3. NICARDIPINE HYDROCHLORIDE [Suspect]
     Active Substance: NICARDIPINE HYDROCHLORIDE
     Indication: Wrong patient
     Dosage: 1 DF, TOTAL
     Route: 048
     Dates: start: 20241122, end: 20241122
  4. VALPROATE SODIUM [Concomitant]
     Active Substance: VALPROATE SODIUM
     Indication: Wrong patient
     Dosage: 1 DF, TOTAL
     Route: 048
     Dates: start: 20241122, end: 20241122
  5. ANETHOLTRITHION [Concomitant]
     Active Substance: ANETHOLTRITHION
     Indication: Wrong patient
     Dosage: 1 DF, TOTAL
     Route: 048
     Dates: start: 20241122, end: 20241122
  6. LEVODOPA [Concomitant]
     Active Substance: LEVODOPA
     Indication: Wrong patient
     Dosage: 1 DF, TOTAL
     Route: 048
     Dates: start: 20241122, end: 20241122
  7. FERROUS SULFATE [Concomitant]
     Active Substance: FERROUS SULFATE
     Indication: Wrong patient
     Dosage: 1 DF, TOTAL
     Route: 048
     Dates: start: 20241122, end: 20241122
  8. LEVOTHYROXINE [Concomitant]
     Active Substance: LEVOTHYROXINE
     Indication: Wrong patient
     Dosage: 88 UG, TOTAL
     Route: 048
     Dates: start: 20241122, end: 20241122
  9. DAFALGAN [Concomitant]
     Active Substance: ACETAMINOPHEN
     Indication: Wrong patient
     Dosage: 2 DF, TOTAL
     Route: 048
     Dates: start: 20241122, end: 20241122

REACTIONS (2)
  - Hypotension [Recovered/Resolved]
  - Wrong patient [Recovered/Resolved]

NARRATIVE: CASE EVENT DATE: 20241122
